FAERS Safety Report 18510896 (Version 1)
Quarter: 2020Q4

REPORT INFORMATION
  Report Type: Spontaneous
  Country: DE (occurrence: DE)
  Receive Date: 20201117
  Receipt Date: 20201117
  Transmission Date: 20210114
  Serious: Yes (Hospitalization)
  Sender: FDA-Public Use
  Company Number: DE-ASTRAZENECA-2020SF47119

PATIENT
  Age: 74 Year
  Sex: Male

DRUGS (11)
  1. RANOLAZIN [Concomitant]
     Active Substance: RANOLAZINE
     Dosage: 375 MG, 1-0-1-0
  2. TICAGRELOR. [Suspect]
     Active Substance: TICAGRELOR
     Route: 048
  3. TORASEMID [Concomitant]
     Active Substance: TORSEMIDE
     Dosage: 10 MG, 1-0.5-0-0
  4. RAMIPRIL. [Concomitant]
     Active Substance: RAMIPRIL
     Dosage: 2.5 MG, 1-0-0-0
  5. TAMSULOSIN [Concomitant]
     Active Substance: TAMSULOSIN
     Dosage: 0.4 MG, 0-0-1-0
  6. PANTOPRAZOL [Concomitant]
     Active Substance: PANTOPRAZOLE SODIUM
  7. TROSPIUM [Concomitant]
     Active Substance: TROSPIUM
     Dosage: 30 MG, 2-0-0-0
  8. ACETYLSALICYLSAEURE [Suspect]
     Active Substance: ASPIRIN
     Route: 065
  9. ALLOPURINOL. [Concomitant]
     Active Substance: ALLOPURINOL
     Dosage: 100 MG, 0-0-1-0
  10. METOPROLOL. [Concomitant]
     Active Substance: METOPROLOL
     Dosage: 23.75 MG, 1-0-0-1
  11. ATORVASTATIN [Concomitant]
     Active Substance: ATORVASTATIN
     Dosage: 40 MG, PAUSE

REACTIONS (5)
  - Abdominal pain [Unknown]
  - General physical health deterioration [Unknown]
  - Anaemia [Unknown]
  - Abdominal pain upper [Unknown]
  - Internal haemorrhage [Unknown]
